FAERS Safety Report 6526368-8 (Version None)
Quarter: 2010Q1

REPORT INFORMATION
  Report Type: 
  Country: None (occurrence: None)
  Receive Date: 20100105
  Receipt Date: 20091224
  Transmission Date: 20100710
  Serious: Yes (Hospitalization)
  Sender: FDA-Public Use
  Company Number: IT-TEVA-219241ISR

PATIENT
  Sex: Male

DRUGS (10)
  1. VINCRISTINE [Suspect]
     Indication: NON-HODGKIN'S LYMPHOMA
     Route: 042
     Dates: start: 20090812, end: 20090910
  2. RITUXIMAB [Suspect]
     Indication: NON-HODGKIN'S LYMPHOMA
     Route: 042
     Dates: start: 20090819, end: 20090909
  3. DOXORUBICIN HCL [Suspect]
     Indication: NON-HODGKIN'S LYMPHOMA
     Route: 042
     Dates: start: 20090812, end: 20090910
  4. CYCLOPHOSPHAMIDE [Concomitant]
     Route: 042
     Dates: start: 20090812, end: 20090910
  5. MESNA [Concomitant]
     Route: 042
     Dates: start: 20090812, end: 20090901
  6. PREDNISONE [Concomitant]
     Route: 048
     Dates: start: 20090812, end: 20090901
  7. MESALAZINE [Concomitant]
     Route: 048
  8. CO-TRIMOXAZOLE [Concomitant]
     Dosage: 160 MG/800 MG
     Route: 048
  9. ALLOPURINOL [Concomitant]
     Route: 048
  10. PEGFILGRASTIM [Concomitant]
     Route: 058
     Dates: start: 20090911, end: 20090911

REACTIONS (2)
  - FEBRILE NEUTROPENIA [None]
  - STOMATITIS [None]
